FAERS Safety Report 5249131-7 (Version None)
Quarter: 2007Q1

REPORT INFORMATION
  Report Type: 
  Country: None (occurrence: None)
  Receive Date: 20070228
  Receipt Date: 20070215
  Transmission Date: 20070707
  Serious: Yes (Hospitalization, Other)
  Sender: FDA-Public Use
  Company Number: US-AVENTIS-200711040US

PATIENT
  Sex: Male

DRUGS (2)
  1. LOVENOX [Suspect]
     Dosage: DOSE: UNK
  2. IBUPROFEN [Concomitant]
     Dosage: DOSE: UNK

REACTIONS (4)
  - CARDIAC ARREST [None]
  - HAEMOGLOBIN DECREASED [None]
  - HYPOTENSION [None]
  - RETROPERITONEAL HAEMORRHAGE [None]
